FAERS Safety Report 17667141 (Version 1)
Quarter: 2020Q2

REPORT INFORMATION
  Report Type: Report from Study
  Country: US (occurrence: US)
  Receive Date: 20200414
  Receipt Date: 20200414
  Transmission Date: 20200713
  Serious: Yes (Hospitalization, Other)
  Sender: FDA-Public Use
  Company Number: US-MYLANLABS-2020M1036825

PATIENT
  Age: 22 Year
  Sex: Female

DRUGS (3)
  1. AMBRISENTAN TABLETS [Suspect]
     Active Substance: AMBRISENTAN
     Indication: PULMONARY ARTERIAL HYPERTENSION
     Dosage: DAILY
     Route: 048
     Dates: start: 20170418
  2. AMBRISENTAN TABLETS [Suspect]
     Active Substance: AMBRISENTAN
     Indication: HEART DISEASE CONGENITAL
  3. OXYGEN. [Concomitant]
     Active Substance: OXYGEN
     Dosage: 4 L

REACTIONS (6)
  - Condition aggravated [Unknown]
  - Therapeutic product effect decreased [Unknown]
  - Dyspnoea [Not Recovered/Not Resolved]
  - Pyrexia [Unknown]
  - Orthopnoea [Unknown]
  - Right ventricular failure [Unknown]

NARRATIVE: CASE EVENT DATE: 20200331
